FAERS Safety Report 4913321-0 (Version None)
Quarter: 2006Q1

REPORT INFORMATION
  Report Type: 
  Country: None (occurrence: None)
  Receive Date: 20060210
  Receipt Date: 20060130
  Transmission Date: 20060701
  Serious: Yes (Hospitalization, Other)
  Sender: FDA-Public Use
  Company Number: HQWYE135622DEC05

PATIENT
  Age: 73 Year
  Sex: Male

DRUGS (10)
  1. ANCARON (AMIODARONE, TABLET) [Suspect]
     Indication: VENTRICULAR TACHYCARDIA
     Dosage: 200 MG 2X PER 1 DAY, ORAL
     Route: 048
     Dates: start: 20021203, end: 20051205
  2. LASIX [Concomitant]
  3. CARVEDILOL [Concomitant]
  4. DIOVAN [Concomitant]
  5. SEPAZON (CLOXAZOLAM) [Concomitant]
  6. FAMOTIDINE [Concomitant]
  7. CERNILTON (CERNITIN GBX/CERNTIN T60) [Concomitant]
  8. MAGNESIUM OXIDE (MAGNESIUM OXIDE) [Concomitant]
  9. PURSENNID (SENNA LEAF) [Concomitant]
  10. WARFARIN SODIUM [Concomitant]

REACTIONS (12)
  - ANOREXIA [None]
  - CARDIAC FAILURE [None]
  - CARDIOMEGALY [None]
  - DEHYDRATION [None]
  - HYPERTROPHIC CARDIOMYOPATHY [None]
  - PLEURAL EFFUSION [None]
  - PNEUMONIA [None]
  - PULMONARY ALVEOLAR HAEMORRHAGE [None]
  - PULMONARY OEDEMA [None]
  - SHOCK [None]
  - VENTRICULAR TACHYCARDIA [None]
  - VOMITING [None]
